FAERS Safety Report 25479099 (Version 2)
Quarter: 2025Q3

REPORT INFORMATION
  Report Type: Spontaneous
  Country: US (occurrence: US)
  Receive Date: 20250625
  Receipt Date: 20250703
  Transmission Date: 20251020
  Serious: No
  Sender: GILEAD
  Company Number: US-GILEAD-2025-0718313

PATIENT
  Age: 69 Year
  Sex: Female

DRUGS (2)
  1. LENACAPAVIR [Suspect]
     Active Substance: LENACAPAVIR
     Indication: HIV infection
     Route: 058
     Dates: start: 202505
  2. LENACAPAVIR [Suspect]
     Active Substance: LENACAPAVIR
     Dosage: 2 DOSAGE FORM, QD; DAY 1 AND DAY 2
     Route: 048

REACTIONS (7)
  - Malaise [Unknown]
  - Injection site reaction [Unknown]
  - Fibromyalgia [Recovered/Resolved]
  - Decreased appetite [Not Recovered/Not Resolved]
  - Constipation [Unknown]
  - Nausea [Unknown]
  - Muscle twitching [Unknown]

NARRATIVE: CASE EVENT DATE: 20250620
